FAERS Safety Report 7922375 (Version 2)
Quarter: 2014Q2

REPORT INFORMATION
  Report Type: Spontaneous
  Country: US (occurrence: US)
  Receive Date: 20110429
  Receipt Date: 20140416
  Transmission Date: 20141212
  Serious: No
  Sender: FDA-Public Use
  Company Number: US-ASTRAZENECA-2011SE04846

PATIENT
  Age: 72 Year
  Sex: Female
  Weight: 88.5 kg

DRUGS (6)
  1. NEXIUM [Suspect]
     Indication: GASTROOESOPHAGEAL REFLUX DISEASE
     Route: 048
     Dates: start: 2012, end: 20140211
  2. OMEPRAZOLE OTC [Suspect]
     Indication: GASTROOESOPHAGEAL REFLUX DISEASE
     Route: 048
     Dates: start: 2014
  3. AMLODIPINE [Concomitant]
     Indication: BLOOD PRESSURE ABNORMAL
  4. BISOPROLOL [Concomitant]
     Indication: BLOOD PRESSURE ABNORMAL
  5. SIMVASTATIN [Concomitant]
     Indication: BLOOD CHOLESTEROL ABNORMAL
  6. CHLORDIAZEPOXIDE HYDROCHORIDE [Concomitant]
     Indication: GASTRIC DISORDER

REACTIONS (3)
  - Abdominal discomfort [Unknown]
  - Intentional product misuse [Not Recovered/Not Resolved]
  - Drug ineffective [Not Recovered/Not Resolved]
